FAERS Safety Report 8189814-2 (Version None)
Quarter: 2012Q1

REPORT INFORMATION
  Report Type: 
  Country: None (occurrence: None)
  Receive Date: 20120307
  Receipt Date: 20110725
  Transmission Date: 20120608
  Serious: No
  Sender: FDA-Public Use
  Company Number: US-GLAXOSMITHKLINE-A0938185A

PATIENT
  Age: 68 Year
  Sex: Female

DRUGS (5)
  1. BLOOD PRESSURE MEDICATION [Concomitant]
  2. LUNESTA [Concomitant]
  3. KLONOPIN [Concomitant]
  4. REQUIP [Suspect]
     Indication: RESTLESS LEGS SYNDROME
     Route: 048
     Dates: start: 20090101, end: 20110723
  5. NEURONTIN [Concomitant]

REACTIONS (2)
  - LIP SWELLING [None]
  - URTICARIA [None]
